FAERS Safety Report 24961292 (Version 1)
Quarter: 2025Q1

REPORT INFORMATION
  Report Type: Spontaneous
  Country: PL (occurrence: PL)
  Receive Date: 20250212
  Receipt Date: 20250212
  Transmission Date: 20250408
  Serious: Yes (Death, Hospitalization, Other)
  Sender: Kenvue
  Company Number: PL-KENVUE-20250201737

PATIENT

DRUGS (1)
  1. ACETAMINOPHEN [Suspect]
     Active Substance: ACETAMINOPHEN
     Indication: Product used for unknown indication
     Route: 065

REACTIONS (4)
  - Acute hepatic failure [Fatal]
  - Multiple organ dysfunction syndrome [Fatal]
  - Overdose [Fatal]
  - Acute kidney injury [Fatal]
